FAERS Safety Report 12373258 (Version 1)
Quarter: 2016Q2

REPORT INFORMATION
  Report Type: Spontaneous
  Country: US (occurrence: US)
  Receive Date: 20160516
  Receipt Date: 20160516
  Transmission Date: 20160815
  Serious: Yes (Hospitalization, Other)
  Sender: FDA-Public Use
  Company Number: ADR-2015-00985

PATIENT
  Age: 48 Year
  Sex: Female

DRUGS (7)
  1. REQUIP [Suspect]
     Active Substance: ROPINIROLE HYDROCHLORIDE
  2. CELEBREX [Suspect]
     Active Substance: CELECOXIB
  3. BUTRANS [Suspect]
     Active Substance: BUPRENORPHINE
  4. BACLOFEN. [Suspect]
     Active Substance: BACLOFEN
     Dosage: 954.8MCG/DAY
     Route: 037
  5. LIORESAL [Suspect]
     Active Substance: BACLOFEN
     Dosage: 200MCG/DAY
     Route: 037
  6. OMNEOPRAZOLE [Suspect]
     Active Substance: UNSPECIFIED INGREDIENT
  7. LASIX [Suspect]
     Active Substance: FUROSEMIDE

REACTIONS (5)
  - Tachycardia [Recovered/Resolved]
  - Underdose [Recovered/Resolved]
  - Hallucination [Recovered/Resolved]
  - Muscle spasticity [Recovered/Resolved]
  - Drug withdrawal syndrome [Recovered/Resolved]

NARRATIVE: CASE EVENT DATE: 20150512
